FAERS Safety Report 4886577-0 (Version None)
Quarter: 2005Q4

REPORT INFORMATION
  Report Type: 
  Country: None (occurrence: None)
  Receive Date: 20051220
  Receipt Date: 20050915
  Transmission Date: 20060501
  Serious: Yes (Life-Threatening, Hospitalization, Other)
  Sender: FDA-Public Use
  Company Number: HQWYE510616SEP05

PATIENT
  Age: 58 Year
  Sex: Female
  Weight: 91.25 kg

DRUGS (10)
  1. EFFEXOR XR [Suspect]
     Indication: BIPOLAR DISORDER
     Dosage: 75 MG 1X PER 1 DAY, ORAL
     Route: 048
     Dates: start: 20050309, end: 20050816
  2. EFFEXOR XR [Suspect]
     Indication: DEPRESSION
     Dosage: 75 MG 1X PER 1 DAY, ORAL
     Route: 048
     Dates: start: 20050309, end: 20050816
  3. CELEBREX [Concomitant]
  4. SKELAXIN [Concomitant]
  5. DICYCLOMINE HCL [Concomitant]
  6. CLARINEX [Concomitant]
  7. SYNTHROID [Concomitant]
  8. ADVAIR DISKUS 100/50 [Concomitant]
  9. FUROSEMIDE [Concomitant]
  10. ALBUTEROL [Concomitant]

REACTIONS (2)
  - MANIA [None]
  - MYOCARDIAL INFARCTION [None]
